FAERS Safety Report 13030517 (Version 1)
Quarter: 2016Q4

REPORT INFORMATION
  Report Type: Spontaneous
  Country: US (occurrence: US)
  Receive Date: 20161215
  Receipt Date: 20161215
  Transmission Date: 20170207
  Serious: Yes (Hospitalization)
  Sender: FDA-Public Use
  Company Number: None

PATIENT
  Age: 52 Year
  Sex: Female
  Weight: 84 kg

DRUGS (5)
  1. PEMBROLIZUMAB, 200 MG Q3W MERCK SHARP + DOHME CORP. [Suspect]
     Active Substance: PEMBROLIZUMAB
     Indication: METASTASES TO MENINGES
     Route: 042
     Dates: start: 20161110, end: 20161201
  2. DECADRON [Concomitant]
     Active Substance: DEXAMETHASONE
  3. PRILOSEC [Concomitant]
     Active Substance: OMEPRAZOLE MAGNESIUM
  4. TYLENOL [Concomitant]
     Active Substance: ACETAMINOPHEN
  5. PEMBROLIZUMAB, 200 MG Q3W MERCK SHARP + DOHME CORP. [Suspect]
     Active Substance: PEMBROLIZUMAB
     Indication: BREAST CANCER METASTATIC
     Route: 042
     Dates: start: 20161110, end: 20161201

REACTIONS (10)
  - Abdominal pain [None]
  - Urinary incontinence [None]
  - Malaise [None]
  - Abasia [None]
  - Speech disorder [None]
  - Hemiparesis [None]
  - Memory impairment [None]
  - Brain oedema [None]
  - Gait disturbance [None]
  - Confusional state [None]

NARRATIVE: CASE EVENT DATE: 20161211
